FAERS Safety Report 23111939 (Version 1)
Quarter: 2023Q4

REPORT INFORMATION
  Report Type: Spontaneous
  Country: US (occurrence: None)
  Receive Date: 20231025
  Receipt Date: 20231025
  Transmission Date: 20240110
  Serious: Yes (Disabling, Other)
  Sender: FDA-Public Use
  Company Number: None

PATIENT
  Sex: Female

DRUGS (2)
  1. MIRENA [Suspect]
     Active Substance: LEVONORGESTREL
     Dates: start: 20171001, end: 20231002
  2. Digestive Enzymes with probiotics [Concomitant]

REACTIONS (14)
  - Dairy intolerance [None]
  - Panic attack [None]
  - Anxiety [None]
  - Dizziness [None]
  - Palpitations [None]
  - Pain [None]
  - Back pain [None]
  - Arthralgia [None]
  - Hyperhidrosis [None]
  - Hot flush [None]
  - Blood pressure fluctuation [None]
  - Crying [None]
  - Palpitations [None]
  - Brain fog [None]

NARRATIVE: CASE EVENT DATE: 20231002
